FAERS Safety Report 5952068-9 (Version None)
Quarter: 2008Q4

REPORT INFORMATION
  Report Type: 
  Country: None (occurrence: None)
  Receive Date: 20081113
  Receipt Date: 20080215
  Transmission Date: 20090506
  Serious: No
  Sender: FDA-Public Use
  Company Number: A0709993A

PATIENT
  Age: 86 Year
  Sex: Female

DRUGS (10)
  1. CARVEDILOL [Suspect]
     Dosage: 12.5MG TWICE PER DAY
     Route: 048
  2. COREG [Suspect]
     Dosage: 12.5MG TWICE PER DAY
     Route: 048
     Dates: start: 20060101
  3. COZAAR [Concomitant]
  4. HYZAAR [Concomitant]
  5. TIMOLOL [Concomitant]
  6. AZOPT [Concomitant]
  7. PILOCARPINE [Concomitant]
  8. LUMIGAN [Concomitant]
  9. ZYRTEC [Concomitant]
  10. VYTORIN [Concomitant]

REACTIONS (5)
  - BLADDER PROLAPSE [None]
  - HYPERSENSITIVITY [None]
  - RASH [None]
  - URINARY INCONTINENCE [None]
  - UTERINE PROLAPSE [None]
